FAERS Safety Report 12962695 (Version 2)
Quarter: 2016Q4

REPORT INFORMATION
  Report Type: Report from Study
  Country: HK (occurrence: HK)
  Receive Date: 20161121
  Receipt Date: 20161208
  Transmission Date: 20170207
  Serious: Yes (Death)
  Sender: FDA-Public Use
  Company Number: HK-ASTRAZENECA-2016SF23693

PATIENT
  Age: 23371 Day
  Sex: Male

DRUGS (1)
  1. TAGRISSO [Suspect]
     Active Substance: OSIMERTINIB
     Indication: LUNG NEOPLASM MALIGNANT
     Route: 048
     Dates: start: 20160627, end: 20161017

REACTIONS (2)
  - Pneumonia [Fatal]
  - Pneumonitis [Fatal]

NARRATIVE: CASE EVENT DATE: 20161017
